FAERS Safety Report 12781318 (Version 1)
Quarter: 2016Q3

REPORT INFORMATION
  Report Type: Report from Study
  Country: US (occurrence: US)
  Receive Date: 20160926
  Receipt Date: 20160926
  Transmission Date: 20161109
  Serious: Yes (Death)
  Sender: FDA-Public Use
  Company Number: US-ACTELION-A-NJ2016-142482

PATIENT
  Age: 75 Year
  Sex: Female

DRUGS (1)
  1. OPSUMIT [Suspect]
     Active Substance: MACITENTAN
     Indication: PULMONARY ARTERIAL HYPERTENSION
     Dosage: UNK
     Route: 048
     Dates: start: 2015, end: 201608

REACTIONS (6)
  - Procedural complication [Fatal]
  - Intracardiac thrombus [Fatal]
  - Myocardial infarction [Fatal]
  - Nephropathy toxic [Fatal]
  - Renal failure [Fatal]
  - Pulmonary oedema [Fatal]
